FAERS Safety Report 18407665 (Version 2)
Quarter: 2020Q4

REPORT INFORMATION
  Report Type: Spontaneous
  Country: US (occurrence: US)
  Receive Date: 20201021
  Receipt Date: 20201110
  Transmission Date: 20210114
  Serious: Yes (Other)
  Sender: FDA-Public Use
  Company Number: US-ASTRAZENECA-2020SF31122

PATIENT
  Age: 17645 Day
  Sex: Female
  Weight: 115.2 kg

DRUGS (18)
  1. PROAIR HFA [Concomitant]
     Active Substance: ALBUTEROL SULFATE
     Dosage: 90 MCG/INH, INHALATION AEROSOL 2 PUFF
     Dates: start: 20200826
  2. FLUTICASONE. [Concomitant]
     Active Substance: FLUTICASONE
     Dosage: 50 MCG/INH NASAL SPRAY 2 SPRAY, INTRNASAL, DAILY
     Dates: start: 20200805
  3. IBUPROFEN. [Concomitant]
     Active Substance: IBUPROFEN
     Dosage: PRN, BY MOUTH, Q6H
     Route: 048
     Dates: start: 20190910
  4. PREDNISONE. [Concomitant]
     Active Substance: PREDNISONE
     Dosage: 4 TABS ONCE DAILY X 3 DAYS, THEN 3 TABS ONCE DAILY X 3 DAYS, THEN 2 TABS DAILY X 3 DAYS, THEN 1 T...
     Route: 048
     Dates: start: 20200918
  5. SPIRIVA [Concomitant]
     Active Substance: TIOTROPIUM BROMIDE MONOHYDRATE
     Dosage: 18 MCG INHALATION CAPSULE , 5, INHALATION, DAILY
     Dates: start: 20200918
  6. VITAMIN D3 [Concomitant]
     Active Substance: CHOLECALCIFEROL
     Dosage: 2000 INTL UNITS (50 MCG) ORAL CAPSULE, BY MOUTH, DAILY
     Route: 048
  7. BREO ELLIPTA [Concomitant]
     Active Substance: FLUTICASONE FUROATE\VILANTEROL TRIFENATATE
     Dosage: 200 MCG-25 MCG/INH, INHALATION POWDER 1 PUFF,2, NEB, DAILY
     Dates: start: 20200901
  8. PROAIR HFA [Concomitant]
     Active Substance: ALBUTEROL SULFATE
     Dosage: PRN, INHALTION, Q4H ALBUTEROL CFC FREE 90 MCG/INH INHALATION AEROSOL 2 PUFF, PRN, NEB, Q4H
     Dates: start: 20200414
  9. ATIVAN [Concomitant]
     Active Substance: LORAZEPAM
     Dosage: 3, PRN, BY MOUTH, DAILY
     Route: 048
     Dates: start: 20200603
  10. AZELASTINE. [Concomitant]
     Active Substance: AZELASTINE HYDROCHLORIDE
     Dosage: (137 MCG/INH) SPRAY 2 SPARY, 4, INTRANASAL, BID
     Route: 045
     Dates: start: 20200908
  11. EPIPEN [Concomitant]
     Active Substance: EPINEPHRINE
     Dosage: AUTOINJECTOR 0.3 MG INJECTABLE KIT, 0.3 MG, 1, IM, ONCE
     Dates: start: 20201006
  12. FASENRA [Suspect]
     Active Substance: BENRALIZUMAB
     Indication: ASTHMA
     Dosage: 30.0MG UNKNOWN
     Route: 058
     Dates: start: 20201005, end: 20201005
  13. MONTELUKAST [Concomitant]
     Active Substance: MONTELUKAST SODIUM
     Dosage: 5, BY MOUTH, QPM(EVERY EVENING)
     Route: 048
     Dates: start: 20200918
  14. PROZAC [Concomitant]
     Active Substance: FLUOXETINE HYDROCHLORIDE
     Dosage: BY MOUTH, DAILY
     Route: 048
     Dates: start: 20200825
  15. VITAMIN D WITH MINERALS [Concomitant]
     Dosage: 1 TABLET, BY MOUTH, DAILY
     Route: 048
     Dates: start: 20181002
  16. ZYRTEC [Concomitant]
     Active Substance: CETIRIZINE HYDROCHLORIDE
     Dosage: 1 TABLET, BY MOUTH, DAILY
     Route: 048
     Dates: start: 20200429
  17. VITAMIN B12 [Concomitant]
     Active Substance: CYANOCOBALAMIN
     Dates: start: 20181002
  18. AUVI-Q [Concomitant]
     Active Substance: EPINEPHRINE
     Dosage: 0.3 MG INJECTABLE KIT, 6, PRN, IM, AS NEEDED
     Dates: start: 20200918

REACTIONS (5)
  - Swollen tongue [Recovered/Resolved]
  - Hypersensitivity [Recovered/Resolved]
  - Pruritus [Recovered/Resolved]
  - Ear disorder [Recovered/Resolved]
  - Oropharyngeal discomfort [Recovered/Resolved]

NARRATIVE: CASE EVENT DATE: 20201005
